FAERS Safety Report 13319346 (Version 1)
Quarter: 2017Q1

REPORT INFORMATION
  Report Type: Spontaneous
  Country: US (occurrence: US)
  Receive Date: 20170309
  Receipt Date: 20170309
  Transmission Date: 20170428
  Serious: No
  Sender: FDA-Public Use
  Company Number: None

PATIENT
  Age: 71 Year
  Sex: Female

DRUGS (1)
  1. STIVARGA [Suspect]
     Active Substance: REGORAFENIB
     Indication: PRODUCT USED FOR UNKNOWN INDICATION
     Dosage: 160MG DAILY X 21 DAYS ON, 7 DAYS OFF ORALLY
     Route: 048
     Dates: start: 20170124, end: 20170205

REACTIONS (2)
  - Dyspnoea [None]
  - Rash macular [None]

NARRATIVE: CASE EVENT DATE: 20170205
